FAERS Safety Report 20385492 (Version 1)
Quarter: 2022Q1

REPORT INFORMATION
  Report Type: Spontaneous
  Country: PE (occurrence: PE)
  Receive Date: 20220127
  Receipt Date: 20220127
  Transmission Date: 20220424
  Serious: Yes (Hospitalization)
  Sender: FDA-Public Use
  Company Number: PE-TEVA-2022-PE-2001084

PATIENT
  Age: 44 Year
  Sex: Male

DRUGS (3)
  1. HYDROCHLOROTHIAZIDE [Suspect]
     Active Substance: HYDROCHLOROTHIAZIDE
     Indication: Diabetes insipidus
     Dosage: 25 MILLIGRAM DAILY;
     Route: 065
  2. CHLORPROPAMIDE [Concomitant]
     Active Substance: CHLORPROPAMIDE
     Indication: Diabetes insipidus
     Dosage: 100 MILLIGRAM DAILY;
     Route: 065
  3. CARBAMAZEPINE [Concomitant]
     Active Substance: CARBAMAZEPINE
     Indication: Diabetes insipidus
     Dosage: 600 MILLIGRAM DAILY; THRICE DAILY
     Route: 065

REACTIONS (1)
  - Diabetes mellitus [Recovering/Resolving]
